FAERS Safety Report 4316058-4 (Version None)
Quarter: 2004Q1

REPORT INFORMATION
  Report Type: 
  Country: None (occurrence: None)
  Receive Date: 20040312
  Receipt Date: 20040224
  Transmission Date: 20041129
  Serious: Yes (Hospitalization)
  Sender: FDA-Public Use
  Company Number: PHBS2004CO02703

PATIENT
  Age: 40 Year
  Sex: Male
  Weight: 100 kg

DRUGS (2)
  1. VOLTAREN [Suspect]
     Indication: NEURALGIA
     Route: 030
     Dates: start: 20040131
  2. DYNASTAT [Concomitant]
     Dates: start: 20040130

REACTIONS (5)
  - BURNING SENSATION [None]
  - BUTTOCK PAIN [None]
  - CAUSTIC INJURY [None]
  - ERYTHEMA [None]
  - INJECTION SITE NECROSIS [None]
